FAERS Safety Report 12636614 (Version 1)
Quarter: 2016Q3

REPORT INFORMATION
  Report Type: Spontaneous
  Country: IT (occurrence: IT)
  Receive Date: 20160809
  Receipt Date: 20160809
  Transmission Date: 20161109
  Serious: Yes (Life-Threatening)
  Sender: FDA-Public Use
  Company Number: IT-ASTRAZENECA-2016SE83216

PATIENT
  Age: 28450 Day
  Sex: Female
  Weight: 74 kg

DRUGS (2)
  1. DICLOFENAC [Concomitant]
     Active Substance: DICLOFENAC
     Indication: MYALGIA
     Route: 048
  2. PROVISACOR [Suspect]
     Active Substance: ROSUVASTATIN
     Indication: DYSLIPIDAEMIA
     Route: 048
     Dates: start: 20130101, end: 20151227

REACTIONS (3)
  - Rhabdomyolysis [Recovered/Resolved with Sequelae]
  - Hepatic failure [Unknown]
  - Crush syndrome [Recovered/Resolved with Sequelae]

NARRATIVE: CASE EVENT DATE: 20151228
